FAERS Safety Report 7558527-X (Version None)
Quarter: 2011Q2

REPORT INFORMATION
  Report Type: 
  Country: None (occurrence: None)
  Receive Date: 20110620
  Receipt Date: 20110613
  Transmission Date: 20111010
  Serious: Yes (Other)
  Sender: FDA-Public Use
  Company Number: US-SANOFI-AVENTIS-2011SA019352

PATIENT
  Age: 47 Year
  Sex: Female
  Weight: 82 kg

DRUGS (10)
  1. PLAQUENIL [Suspect]
     Route: 048
     Dates: end: 20010101
  2. ESOMEPRAZOLE MAGNESIUM [Concomitant]
  3. DIURETICS [Concomitant]
  4. PLAQUENIL [Suspect]
     Route: 048
     Dates: start: 20030101, end: 20030101
  5. FLEXERIL [Concomitant]
  6. PLAQUENIL [Suspect]
     Route: 048
     Dates: start: 20081101, end: 20100101
  7. CELEBREX [Concomitant]
  8. NEURONTIN [Concomitant]
  9. PLAQUENIL [Suspect]
     Route: 048
     Dates: start: 19980101
  10. POTASSIUM [Concomitant]

REACTIONS (3)
  - LOSS OF CONSCIOUSNESS [None]
  - VISUAL IMPAIRMENT [None]
  - COUGH [None]
